FAERS Safety Report 20782212 (Version 2)
Quarter: 2022Q2

REPORT INFORMATION
  Report Type: Report from Study
  Country: CA (occurrence: CA)
  Receive Date: 20220504
  Receipt Date: 20220610
  Transmission Date: 20220720
  Serious: Yes (Hospitalization, Other)
  Sender: FDA-Public Use
  Company Number: CA-ABBVIE-22K-028-4378378-00

PATIENT
  Sex: Male

DRUGS (7)
  1. VENCLEXTA [Suspect]
     Active Substance: VENETOCLAX
     Indication: Chronic lymphocytic leukaemia
     Route: 048
     Dates: start: 20220413, end: 202204
  2. VENCLEXTA [Suspect]
     Active Substance: VENETOCLAX
     Route: 048
     Dates: start: 20220420, end: 20220426
  3. VENCLEXTA [Suspect]
     Active Substance: VENETOCLAX
     Route: 048
     Dates: start: 20220427, end: 20220503
  4. VENCLEXTA [Suspect]
     Active Substance: VENETOCLAX
     Route: 048
     Dates: start: 20220504, end: 20220510
  5. VENCLEXTA [Suspect]
     Active Substance: VENETOCLAX
     Route: 048
     Dates: start: 20220511, end: 20220517
  6. ALLOPURINOL [Concomitant]
     Active Substance: ALLOPURINOL
     Indication: Tumour lysis syndrome
     Dates: start: 20220411
  7. ASPIRIN [Concomitant]
     Active Substance: ASPIRIN
     Indication: Product used for unknown indication
     Route: 048

REACTIONS (26)
  - Pneumothorax [Unknown]
  - Dyspnoea [Unknown]
  - Chest pain [Unknown]
  - Visual impairment [Unknown]
  - Decreased appetite [Unknown]
  - Bronchial obstruction [Unknown]
  - Dyspnoea [Unknown]
  - Productive cough [Unknown]
  - Hypersomnia [Unknown]
  - Aphonia [Unknown]
  - Fatigue [Unknown]
  - Pleural thickening [Unknown]
  - Atelectasis [Unknown]
  - Arteriosclerosis coronary artery [Unknown]
  - Aortic arteriosclerosis [Unknown]
  - Retroperitoneal lymphadenopathy [Unknown]
  - Hepatic lesion [Unknown]
  - Renal cyst [Unknown]
  - Lymphadenopathy mediastinal [Unknown]
  - Mucosal disorder [Unknown]
  - Mass [Unknown]
  - Obstruction [Unknown]
  - Breath sounds abnormal [Unknown]
  - Chest X-ray abnormal [Unknown]
  - Tumour lysis syndrome [Unknown]
  - Pleural effusion [Unknown]

NARRATIVE: CASE EVENT DATE: 20220101
